FAERS Safety Report 6766516-8 (Version None)
Quarter: 2010Q2

REPORT INFORMATION
  Report Type: 
  Country: None (occurrence: None)
  Receive Date: 20100611
  Receipt Date: 20100524
  Transmission Date: 20101027
  Serious: Yes (Death, Other)
  Sender: FDA-Public Use
  Company Number: US-BAYER-201020391NA

PATIENT
  Age: 83 Year
  Sex: Female

DRUGS (19)
  1. MAGNEVIST [Suspect]
     Indication: DIAGNOSTIC PROCEDURE
  2. OMNISCAN [Suspect]
     Indication: DIAGNOSTIC PROCEDURE
  3. OPTIMARK [Suspect]
     Indication: DIAGNOSTIC PROCEDURE
  4. MULTIHANCE [Suspect]
     Indication: DIAGNOSTIC PROCEDURE
  5. PROHANCE [Suspect]
     Indication: DIAGNOSTIC PROCEDURE
  6. UNKNOWN GBCA [Suspect]
     Indication: DRUG USE FOR UNKNOWN INDICATION
  7. PLAVIX [Concomitant]
     Dosage: 75 MG DAILY
  8. ASPIRIN [Concomitant]
     Dosage: 81 MG DAILY
  9. HCTZ [Concomitant]
     Dosage: 25 MG DAILY
  10. LOTREL [Concomitant]
     Dosage: 5/10 MG NIGHTLY
  11. CYPROHEPTADINE HCL [Concomitant]
     Dosage: 4 MG , 4 TIMES DAILY
  12. XALATAN [Concomitant]
  13. ALPHAGAN [Concomitant]
  14. COSOPT [Concomitant]
  15. REPLIVA [Concomitant]
  16. MELOXICAM [Concomitant]
     Indication: ARTHRITIS
  17. AMLODIPINE BESYLATE AND BENAZEPRIL HCL [Concomitant]
  18. COLCHINE [Concomitant]
  19. LOVENOX [Concomitant]

REACTIONS (16)
  - ASTHENIA [None]
  - DEFORMITY [None]
  - HYPOAESTHESIA [None]
  - JOINT RANGE OF MOTION DECREASED [None]
  - MUSCLE TIGHTNESS [None]
  - MUSCULAR WEAKNESS [None]
  - MUSCULOSKELETAL STIFFNESS [None]
  - NEPHROGENIC SYSTEMIC FIBROSIS [None]
  - OEDEMA PERIPHERAL [None]
  - PAIN [None]
  - PRURITUS GENERALISED [None]
  - SKIN DISCOLOURATION [None]
  - SKIN HYPERPIGMENTATION [None]
  - SKIN INDURATION [None]
  - SKIN PLAQUE [None]
  - SKIN TIGHTNESS [None]
